FAERS Safety Report 4966911-3 (Version None)
Quarter: 2006Q2

REPORT INFORMATION
  Report Type: 
  Country: None (occurrence: None)
  Receive Date: 20060407
  Receipt Date: 20060330
  Transmission Date: 20061013
  Serious: Yes (Hospitalization)
  Sender: FDA-Public Use
  Company Number: AU-MERCK-0604AUS00002

PATIENT
  Age: 59 Year
  Sex: Male

DRUGS (3)
  1. ZOCOR [Suspect]
     Indication: BLOOD CHOLESTEROL INCREASED
     Route: 048
  2. ALLOPURINOL [Concomitant]
     Indication: GOUT
     Route: 065
  3. WARFARIN [Concomitant]
     Route: 065

REACTIONS (2)
  - AORTIC VALVE DISEASE [None]
  - GYNAECOMASTIA [None]
